FAERS Safety Report 8361829-0 (Version None)
Quarter: 2012Q2

REPORT INFORMATION
  Report Type: 
  Country: None (occurrence: None)
  Receive Date: 20120515
  Receipt Date: 20120508
  Transmission Date: 20120825
  Serious: Yes (Hospitalization)
  Sender: FDA-Public Use
  Company Number: JP-GLAXOSMITHKLINE-B0800919A

PATIENT
  Age: 74 Year
  Sex: Male

DRUGS (5)
  1. LAMIVUDINE (EPIVIR HBV) [Suspect]
     Indication: PRODUCT USED FOR UNKNOWN INDICATION
     Dosage: 100MG PER DAY
     Route: 048
     Dates: start: 20050101
  2. VITAMIN B12 [Concomitant]
     Route: 065
  3. CANDESARTAN CILEXETIL [Concomitant]
     Route: 048
  4. ALINAMIN-F [Concomitant]
     Route: 065
  5. HEPSERA [Suspect]
     Indication: PRODUCT USED FOR UNKNOWN INDICATION
     Dosage: 10MG ALTERNATE DAYS
     Route: 048
     Dates: start: 20050101

REACTIONS (3)
  - HYPOPHOSPHATAEMIA [None]
  - GAIT DISTURBANCE [None]
  - OSTEOMALACIA [None]
